FAERS Safety Report 25950235 (Version 2)
Quarter: 2025Q4

REPORT INFORMATION
  Report Type: Spontaneous
  Country: US (occurrence: US)
  Receive Date: 20251022
  Receipt Date: 20251118
  Transmission Date: 20260118
  Serious: No
  Sender: MERCK SHARP & DOHME LLC
  Company Number: US-009507513-2338791

PATIENT
  Age: 1 Year
  Sex: Female

DRUGS (2)
  1. STERILE DILUENT (WATER) [Suspect]
     Active Substance: WATER
     Indication: Prophylaxis
     Dates: start: 20251009, end: 20251009
  2. VARIVAX [Suspect]
     Active Substance: VARICELLA-ZOSTER VIRUS STRAIN OKA/MERCK LIVE ANTIGEN
     Indication: Prophylaxis
     Dosage: HALF OF DOSE LEAKED OUT
     Dates: start: 20251009, end: 20251009

REACTIONS (8)
  - Accidental underdose [Unknown]
  - Poor quality device used [Unknown]
  - No adverse event [Unknown]
  - Needle issue [Unknown]
  - Manufacturing issue [Unknown]
  - Complication of device removal [Unknown]
  - Syringe issue [Unknown]
  - Device issue [Unknown]

NARRATIVE: CASE EVENT DATE: 20251009
